FAERS Safety Report 9239438 (Version 2)
Quarter: 2013Q2

REPORT INFORMATION
  Report Type: Spontaneous
  Country: US (occurrence: US)
  Receive Date: 20130418
  Receipt Date: 20130617
  Transmission Date: 20140414
  Serious: Yes (Life-Threatening, Hospitalization, Other)
  Sender: FDA-Public Use
  Company Number: US-JNJFOC-20130301893

PATIENT
  Sex: Female

DRUGS (4)
  1. TOPAMAX [Suspect]
     Indication: MIGRAINE
     Route: 048
     Dates: start: 2005, end: 2007
  2. CLARITIN [Suspect]
     Indication: MULTIPLE ALLERGIES
     Route: 065
  3. IMITREX [Suspect]
     Indication: MIGRAINE
     Route: 048
  4. PRENATAL VITAMINS [Concomitant]
     Indication: PRODUCT USED FOR UNKNOWN INDICATION
     Route: 065

REACTIONS (7)
  - HELLP syndrome [Recovered/Resolved]
  - Placental infarction [Unknown]
  - Eclampsia [Recovered/Resolved]
  - Premature labour [Recovered/Resolved]
  - Hypertension [Recovered/Resolved]
  - Depression [Unknown]
  - Exposure during pregnancy [Recovered/Resolved]
